FAERS Safety Report 18864127 (Version 3)
Quarter: 2021Q1

REPORT INFORMATION
  Report Type: Report from Study
  Country: US (occurrence: US)
  Receive Date: 20210209
  Receipt Date: 20210317
  Transmission Date: 20210420
  Serious: Yes (Hospitalization)
  Sender: FDA-Public Use
  Company Number: US-GILEAD-2021-0515519

PATIENT
  Age: 34 Year
  Sex: Male

DRUGS (3)
  1. TRIKAFTA [Concomitant]
     Active Substance: ELEXACAFTOR\IVACAFTOR\TEZACAFTOR
  2. AZTREONAM LYSINE [Suspect]
     Active Substance: AZTREONAM LYSINE
     Indication: CYSTIC FIBROSIS
     Dosage: 75 MG, TID, FOR 28 DAYS ON AND 28 DAYS OFF
     Route: 055
     Dates: start: 20210130
  3. AZTREONAM LYSINE [Suspect]
     Active Substance: AZTREONAM LYSINE
     Indication: CYSTIC FIBROSIS LUNG

REACTIONS (4)
  - Atypical pneumonia [Unknown]
  - Product dose omission issue [Not Recovered/Not Resolved]
  - Wheezing [Not Recovered/Not Resolved]
  - Rash [Not Recovered/Not Resolved]
